FAERS Safety Report 6154224-6 (Version None)
Quarter: 2009Q2

REPORT INFORMATION
  Report Type: 
  Country: None (occurrence: None)
  Receive Date: 20090414
  Receipt Date: 20090410
  Transmission Date: 20091009
  Serious: Yes (Death)
  Sender: FDA-Public Use
  Company Number: JP-EISAI MEDICAL RESEARCH-E2020-03822-SPO-JP

PATIENT
  Sex: Female
  Weight: 50.3 kg

DRUGS (1)
  1. ARICEPT [Suspect]
     Indication: DEMENTIA ALZHEIMER'S TYPE
     Route: 048
     Dates: start: 20080513, end: 20080526

REACTIONS (1)
  - THROMBOTIC THROMBOCYTOPENIC PURPURA [None]
